FAERS Safety Report 15605615 (Version 3)
Quarter: 2018Q4

REPORT INFORMATION
  Report Type: Report from Study
  Country: DE (occurrence: DE)
  Receive Date: 20181112
  Receipt Date: 20181213
  Transmission Date: 20190205
  Serious: Yes (Hospitalization, Other)
  Sender: FDA-Public Use
  Company Number: DE-BAXTER-2018BAX026044

PATIENT
  Age: 81 Year
  Sex: Female
  Weight: 63 kg

DRUGS (32)
  1. DOXORUBICIN [Suspect]
     Active Substance: DOXORUBICIN
     Indication: PRODUCT USED FOR UNKNOWN INDICATION
     Dosage: 85 MG, UNK
     Route: 041
     Dates: start: 20180904, end: 20180904
  2. DOXORUBICIN [Suspect]
     Active Substance: DOXORUBICIN
     Dosage: 85 MG, UNK
     Route: 041
     Dates: start: 20180724, end: 20180724
  3. PREDNISONE. [Suspect]
     Active Substance: PREDNISONE
     Indication: PRODUCT USED FOR UNKNOWN INDICATION
     Dosage: 400 MG, UNK
     Route: 048
     Dates: start: 20180703, end: 20180706
  4. PREDNISONE. [Suspect]
     Active Substance: PREDNISONE
     Dosage: 400 MG, UNK
     Route: 048
     Dates: start: 20180925, end: 20180928
  5. ENDOXAN 1G [Suspect]
     Active Substance: CYCLOPHOSPHAMIDE
     Dosage: 1275 MG, (INFUSION RATE 500 ML/MIN FROM 12:30 TO 13:30)
     Route: 041
     Dates: start: 20180814, end: 20180814
  6. RIXIMYO [Suspect]
     Active Substance: RITUXIMAB
     Indication: DIFFUSE LARGE B-CELL LYMPHOMA
     Dosage: 637 MG, (INFUSION RATE 200 ML/MIN FROM 10:00 TO 12:30)
     Route: 041
     Dates: start: 20180703, end: 20180703
  7. VINCRISTINE [Suspect]
     Active Substance: VINCRISTINE
     Indication: PRODUCT USED FOR UNKNOWN INDICATION
     Dosage: 2.38 MG, UNK
     Route: 041
     Dates: start: 20180814, end: 20180814
  8. PREDNISONE. [Suspect]
     Active Substance: PREDNISONE
     Indication: DIFFUSE LARGE B-CELL LYMPHOMA
     Dosage: 400 MG, UNK
     Route: 048
     Dates: start: 20180724, end: 20180727
  9. PREDNISONE. [Suspect]
     Active Substance: PREDNISONE
     Dosage: 400 MG, UNK
     Route: 048
     Dates: start: 20180814, end: 20180817
  10. PREDNISONE. [Suspect]
     Active Substance: PREDNISONE
     Dosage: 400 MG, UNK
     Route: 048
     Dates: start: 20181023, end: 20181026
  11. ENDOXAN 1G [Suspect]
     Active Substance: CYCLOPHOSPHAMIDE
     Dosage: 1275 MG, (INFUSION RATE 500 ML/MIN FROM 12:30 TO 13:30)
     Route: 041
     Dates: start: 20180925, end: 20180925
  12. RIXIMYO [Suspect]
     Active Substance: RITUXIMAB
     Indication: PRODUCT USED FOR UNKNOWN INDICATION
     Dosage: 637 MG, (INFUSION RATE 200 ML/MIN FROM 10:00 TO 12:30)
     Route: 041
     Dates: start: 20180904, end: 20180904
  13. ENDOXAN 1G [Suspect]
     Active Substance: CYCLOPHOSPHAMIDE
     Indication: PRODUCT USED FOR UNKNOWN INDICATION
     Dosage: 1275 MG, (INFUSION RATE 500 ML/MIN FROM 12:30 TO 13:30)
     Route: 041
     Dates: start: 20180724, end: 20180724
  14. ENDOXAN 1G [Suspect]
     Active Substance: CYCLOPHOSPHAMIDE
     Dosage: 1275 MG, (INFUSION RATE 500 ML/MIN FROM 12:30 TO 13:30)
     Route: 041
     Dates: start: 20180703, end: 20180703
  15. DOXORUBICIN [Suspect]
     Active Substance: DOXORUBICIN
     Dosage: 85 MG, (INFUSION RATE 5.6 ML/MIN FROM 15:30 TO 15:45)
     Route: 041
     Dates: start: 20180613, end: 20180613
  16. DOXORUBICIN [Suspect]
     Active Substance: DOXORUBICIN
     Dosage: 85 MG, UNK
     Route: 041
     Dates: start: 20180814, end: 20180814
  17. RIXIMYO [Suspect]
     Active Substance: RITUXIMAB
     Dosage: 637 MG, (INFUSION RATE 200 ML/MIN FROM 10:00 TO 12:30)
     Route: 041
     Dates: start: 20180724, end: 20180724
  18. VINCRISTINE [Suspect]
     Active Substance: VINCRISTINE
     Dosage: 2.38 MG, UNK
     Route: 041
     Dates: start: 20180703, end: 20180703
  19. ENDOXAN 1G [Suspect]
     Active Substance: CYCLOPHOSPHAMIDE
     Indication: DIFFUSE LARGE B-CELL LYMPHOMA
     Dosage: 1275 MG, (INFUSION RATE 8 ML/MIN FROM 14:30 TO 15:30)
     Route: 041
     Dates: start: 20180613, end: 20180613
  20. RIXIMYO [Suspect]
     Active Substance: RITUXIMAB
     Dosage: 637 MG, (INFUSION RATE 50 ML/MIN FROM 09:00 TO 14:00)
     Route: 041
     Dates: start: 20180613, end: 20180613
  21. ENDOXAN 1G [Suspect]
     Active Substance: CYCLOPHOSPHAMIDE
     Dosage: 1275 MG, (INFUSION RATE 500 ML/MIN FROM 12:30 TO 13:30)
     Route: 041
     Dates: start: 20180904, end: 20180904
  22. DOXORUBICIN [Suspect]
     Active Substance: DOXORUBICIN
     Indication: DIFFUSE LARGE B-CELL LYMPHOMA
     Dosage: 85 MG, UNK
     Route: 041
     Dates: start: 20180703, end: 20180703
  23. DOXORUBICIN [Suspect]
     Active Substance: DOXORUBICIN
     Dosage: 85 MG, (INFUSION RATE 5.6 ML/MIN FROM 12:30 TO 12:45)
     Route: 041
     Dates: start: 20181023, end: 20181023
  24. RIXIMYO [Suspect]
     Active Substance: RITUXIMAB
     Dosage: 637 MG, (INFUSION RATE 3.8 ML/MIN FROM 10:00 TO 12:30)
     Route: 041
     Dates: start: 20181023
  25. VINCRISTINE [Suspect]
     Active Substance: VINCRISTINE
     Dosage: 2.38 MG, UNK
     Route: 041
     Dates: start: 20180613, end: 20180613
  26. PREDNISONE. [Suspect]
     Active Substance: PREDNISONE
     Dosage: 400 MG, UNK
     Route: 048
     Dates: start: 20180904, end: 20180907
  27. DOXORUBICIN [Suspect]
     Active Substance: DOXORUBICIN
     Dosage: 85 MG, (INFUSION RATE 5.6 ML/MIN FROM 13:30 TO 13:45)
     Route: 041
     Dates: start: 20180925, end: 20180925
  28. RIXIMYO [Suspect]
     Active Substance: RITUXIMAB
     Dosage: 637 MG, (INFUSION RATE 3.8 ML/MIN FROM 10:00 TO 12:30)
     Route: 041
     Dates: start: 20180925, end: 20180925
  29. PREDNISONE. [Suspect]
     Active Substance: PREDNISONE
     Dosage: 400 MG, UNK
     Route: 048
     Dates: start: 20180613, end: 20180616
  30. ENDOXAN 1G [Suspect]
     Active Substance: CYCLOPHOSPHAMIDE
     Dosage: 1275 MG, (INFUSION RATE 8.3 ML/MIN FROM 12:30 TO 13:30)
     Route: 041
     Dates: start: 20181023, end: 20181023
  31. RIXIMYO [Suspect]
     Active Substance: RITUXIMAB
     Dosage: 637 MG, (INFUSION RATE 200 ML/MIN FROM 10:00 TO 12:30)
     Route: 041
     Dates: start: 20180814, end: 20180814
  32. VINCRISTINE [Suspect]
     Active Substance: VINCRISTINE
     Indication: DIFFUSE LARGE B-CELL LYMPHOMA
     Dosage: 2.38 MG, UNK
     Route: 041
     Dates: start: 20180724, end: 20180724

REACTIONS (2)
  - Fall [Not Recovered/Not Resolved]
  - Polyneuropathy [Not Recovered/Not Resolved]

NARRATIVE: CASE EVENT DATE: 20180904
